FAERS Safety Report 9866876 (Version 1)
Quarter: 2014Q1

REPORT INFORMATION
  Report Type: Spontaneous
  Country: US (occurrence: None)
  Receive Date: 20140203
  Receipt Date: 20140203
  Transmission Date: 20141002
  Serious: Yes (Other)
  Sender: FDA-Public Use
  Company Number: None

PATIENT
  Age: 4 Year
  Sex: Female
  Weight: 10.89 kg

DRUGS (1)
  1. SINGULAIR [Suspect]
     Indication: ASTHMA
     Dosage: AT BEDTIME, TAKEN BY MOUTH
     Route: 048
     Dates: start: 20081031, end: 20131231

REACTIONS (10)
  - Abdominal pain upper [None]
  - Pain [None]
  - Enuresis [None]
  - Somnambulism [None]
  - Speech disorder [None]
  - Inappropriate affect [None]
  - Sleep terror [None]
  - Abnormal dreams [None]
  - Growth retardation [None]
  - Immune system disorder [None]
